FAERS Safety Report 14923104 (Version 18)
Quarter: 2020Q1

REPORT INFORMATION
  Report Type: Report from Study
  Country: CA (occurrence: CA)
  Receive Date: 20180522
  Receipt Date: 20200302
  Transmission Date: 20200409
  Serious: Yes (Other)
  Sender: FDA-Public Use
  Company Number: PHHY2016CA151379

PATIENT
  Age: 54 Year
  Sex: Male

DRUGS (6)
  1. OCTREOTIDE. [Concomitant]
     Active Substance: OCTREOTIDE
     Indication: NEUROENDOCRINE TUMOUR
     Dosage: UNK, TID
     Route: 058
     Dates: start: 2016, end: 2016
  2. SANDOSTATIN LAR DEPOT [Suspect]
     Active Substance: OCTREOTIDE ACETATE
     Indication: CARCINOID TUMOUR
     Dosage: 40 MG, QMO (EVERY 4 WEEKS)
     Route: 030
     Dates: start: 20170220
  3. SANDOSTATIN LAR DEPOT [Suspect]
     Active Substance: OCTREOTIDE ACETATE
     Dosage: 50 MG, QMO (EVERY 4 WEEKS)
     Route: 030
     Dates: start: 20190909
  4. SANDOSTATIN LAR DEPOT [Suspect]
     Active Substance: OCTREOTIDE ACETATE
     Dosage: 50 MG, QMO (EVERY 4 WEEKS)
     Route: 030
     Dates: start: 20161003
  5. OCTREOTIDE. [Concomitant]
     Active Substance: OCTREOTIDE
     Indication: CARCINOID TUMOUR
  6. SANDOSTATIN LAR DEPOT [Suspect]
     Active Substance: OCTREOTIDE ACETATE
     Indication: NEUROENDOCRINE TUMOUR
     Dosage: 30 MG, QMO (EVERY 4 WEEKS)
     Route: 030
     Dates: start: 20161003, end: 20170123

REACTIONS (44)
  - Anal fistula [Recovered/Resolved]
  - Somnolence [Unknown]
  - Tendonitis [Unknown]
  - Fatigue [Not Recovered/Not Resolved]
  - Myopathy [Unknown]
  - Heart rate decreased [Unknown]
  - Dyspnoea [Unknown]
  - Diverticulitis [Unknown]
  - Nasal septum deviation [Unknown]
  - Proctalgia [Unknown]
  - Nasal congestion [Unknown]
  - Injection site hypersensitivity [Recovered/Resolved]
  - Hepatic congestion [Unknown]
  - Neuroendocrine tumour [Unknown]
  - Hyperhidrosis [Unknown]
  - Dyspepsia [Unknown]
  - Body temperature decreased [Unknown]
  - Bowel movement irregularity [Recovered/Resolved]
  - Musculoskeletal chest pain [Unknown]
  - Diarrhoea [Recovering/Resolving]
  - Injection site discomfort [Recovered/Resolved]
  - Faeces discoloured [Unknown]
  - Injection site pain [Unknown]
  - Injection site hypersensitivity [Recovered/Resolved]
  - Synovial cyst [Unknown]
  - Blood pressure increased [Unknown]
  - Blood pressure systolic decreased [Unknown]
  - Eustachian tube obstruction [Unknown]
  - Oropharyngeal pain [Unknown]
  - Feeling abnormal [Unknown]
  - Anorectal discomfort [Unknown]
  - Haemorrhoids [Recovering/Resolving]
  - Needle issue [Unknown]
  - Metastases to lymph nodes [Unknown]
  - Acute sinusitis [Not Recovered/Not Resolved]
  - Hypersomnia [Unknown]
  - Heart rate increased [Unknown]
  - Anal abscess [Recovered/Resolved]
  - Malignant neoplasm progression [Unknown]
  - Chronic sinusitis [Unknown]
  - Procedural pain [Recovering/Resolving]
  - Mass [Unknown]
  - Flatulence [Unknown]
  - Rash [Unknown]

NARRATIVE: CASE EVENT DATE: 2016
